FAERS Safety Report 11810476 (Version 2)
Quarter: 2016Q2

REPORT INFORMATION
  Report Type: Spontaneous
  Country: FR (occurrence: FR)
  Receive Date: 20151208
  Receipt Date: 20160519
  Transmission Date: 20160815
  Serious: No
  Sender: FDA-Public Use
  Company Number: FR-PFIZER INC-2015417754

PATIENT
  Sex: Female

DRUGS (3)
  1. XALKORI [Suspect]
     Active Substance: CRIZOTINIB
     Dosage: UNK
  2. CERITINIB [Suspect]
     Active Substance: CERITINIB
  3. NIVOLUMAB [Suspect]
     Active Substance: NIVOLUMAB

REACTIONS (1)
  - Generalised oedema [Unknown]
